FAERS Safety Report 6308474-6 (Version None)
Quarter: 2009Q3

REPORT INFORMATION
  Report Type: 
  Country: None (occurrence: None)
  Receive Date: 20090813
  Receipt Date: 20090810
  Transmission Date: 20100115
  Serious: Yes (Other)
  Sender: FDA-Public Use
  Company Number: PHEH2009US09069

PATIENT
  Sex: Male

DRUGS (1)
  1. TEKTURNA HCT [Suspect]
     Dosage: UNK

REACTIONS (4)
  - COUGH [None]
  - FATIGUE [None]
  - PNEUMONIA [None]
  - WHEEZING [None]
